FAERS Safety Report 5382337-5 (Version None)
Quarter: 2007Q3

REPORT INFORMATION
  Report Type: 
  Country: None (occurrence: None)
  Receive Date: 20070709
  Receipt Date: 20070604
  Transmission Date: 20080115
  Serious: Yes (Hospitalization)
  Sender: FDA-Public Use
  Company Number: AU-ELI_LILLY_AND_COMPANY-AU200703004434

PATIENT
  Age: 59 Year
  Sex: Female

DRUGS (8)
  1. PACLITAXEL [Suspect]
     Indication: BREAST CANCER
     Dosage: 324 MG, UNK
     Dates: start: 20070215
  2. GEMCITABINE HCL [Suspect]
     Indication: BREAST CANCER
     Dosage: 3724 MG, 2/W
     Dates: start: 20070215
  3. NEULASTA [Concomitant]
     Indication: PROPHYLAXIS
     Dosage: UNK, UNKNOWN
  4. DEXAMETHASONE [Concomitant]
     Indication: PROPHYLAXIS OF NAUSEA AND VOMITING
     Dosage: UNK, UNKNOWN
  5. ONDASETRON [Concomitant]
     Indication: PROPHYLAXIS OF NAUSEA AND VOMITING
     Dosage: UNK, UNKNOWN
  6. NEXIUM [Concomitant]
     Indication: BARRETT'S OESOPHAGUS
     Dosage: UNK, UNKNOWN
  7. KEFLIN [Concomitant]
     Indication: WOUND INFECTION
     Dosage: UNK, UNKNOWN
  8. VITAMIN B [Concomitant]
     Indication: VITAMIN SUPPLEMENTATION
     Dosage: UNK, UNKNOWN

REACTIONS (1)
  - ALPHA HAEMOLYTIC STREPTOCOCCAL INFECTION [None]
